FAERS Safety Report 17886743 (Version 1)
Quarter: 2020Q2

REPORT INFORMATION
  Report Type: Spontaneous
  Country: US (occurrence: US)
  Receive Date: 20200611
  Receipt Date: 20200611
  Transmission Date: 20200714
  Serious: No
  Sender: FDA-Public Use
  Company Number: US-SCILEX PHARMACEUTICALS INC.-2020SCX00015

PATIENT
  Sex: Female

DRUGS (2)
  1. ZTLIDO [Suspect]
     Active Substance: LIDOCAINE
     Indication: POST HERPETIC NEURALGIA
     Dosage: UNK
     Route: 061
  2. ZTLIDO [Suspect]
     Active Substance: LIDOCAINE
     Indication: PAIN

REACTIONS (1)
  - Drug ineffective [Unknown]
